FAERS Safety Report 13546659 (Version 1)
Quarter: 2017Q2

REPORT INFORMATION
  Report Type: Spontaneous
  Country: US (occurrence: US)
  Receive Date: 20170515
  Receipt Date: 20170515
  Transmission Date: 20170830
  Serious: No
  Sender: FDA-Public Use
  Company Number: None

PATIENT
  Age: 41 Year
  Sex: Female

DRUGS (2)
  1. MOTRIN [Suspect]
     Active Substance: IBUPROFEN
     Indication: PAIN
     Dosage: ?          QUANTITY:1 TABLET(S);?
     Route: 048
  2. TYLENOL WITH CODEINE [Suspect]
     Active Substance: ACETAMINOPHEN\CODEINE PHOSPHATE
     Indication: PAIN
     Dosage: ?          QUANTITY:1 TABLET(S);?
     Route: 048

REACTIONS (2)
  - Vomiting [None]
  - Abdominal discomfort [None]

NARRATIVE: CASE EVENT DATE: 20170510
